FAERS Safety Report 9203301 (Version 1)
Quarter: 2013Q2

REPORT INFORMATION
  Report Type: Spontaneous
  Country: US (occurrence: US)
  Receive Date: 20130402
  Receipt Date: 20130402
  Transmission Date: 20140414
  Serious: Yes (Other)
  Sender: FDA-Public Use
  Company Number: US-JNJFOC-20130317959

PATIENT
  Sex: 0

DRUGS (1)
  1. TYLOX [Suspect]
     Indication: NEPHROLITHIASIS
     Route: 065

REACTIONS (2)
  - Drug dependence [Unknown]
  - Intentional drug misuse [Unknown]
